FAERS Safety Report 26181399 (Version 2)
Quarter: 2025Q4

REPORT INFORMATION
  Report Type: Spontaneous
  Country: US (occurrence: US)
  Receive Date: 20251221
  Receipt Date: 20251229
  Transmission Date: 20260117
  Serious: Yes (Other)
  Sender: AMGEN
  Company Number: US-AMGEN-USASP2025247080

PATIENT
  Age: 70 Year
  Sex: Female

DRUGS (2)
  1. PROLIA [Suspect]
     Active Substance: DENOSUMAB
     Indication: Product used for unknown indication
     Dosage: UNK
     Route: 065
     Dates: start: 20250515, end: 20250515
  2. RECLAST [Concomitant]
     Active Substance: ZOLEDRONIC ACID
     Indication: Osteoporosis
     Dosage: UNK UNK, Q12MO
     Route: 065
     Dates: start: 202206

REACTIONS (10)
  - Osteomyelitis [Unknown]
  - Osteonecrosis of jaw [Unknown]
  - Exostosis of jaw [Unknown]
  - Palatal ulcer [Unknown]
  - Pain in extremity [Unknown]
  - Depression [Unknown]
  - Anxiety [Unknown]
  - Arthritis [Unknown]
  - Tonsillitis [Unknown]
  - Ear pain [Unknown]

NARRATIVE: CASE EVENT DATE: 20250101
